FAERS Safety Report 6053123-8 (Version None)
Quarter: 2009Q1

REPORT INFORMATION
  Report Type: 
  Country: None (occurrence: None)
  Receive Date: 20090127
  Receipt Date: 20090116
  Transmission Date: 20090719
  Serious: Yes (Hospitalization)
  Sender: FDA-Public Use
  Company Number: IT-ELI_LILLY_AND_COMPANY-IT200901003432

PATIENT
  Age: 75 Year
  Sex: Male

DRUGS (1)
  1. CIALIS [Suspect]
     Dosage: 30 MG (HALF A 20MG TABLET + ENTIRE 20MG TABLET), IN ONE DAY
     Route: 048

REACTIONS (2)
  - CEREBRAL HAEMORRHAGE [None]
  - DRUG INEFFECTIVE [None]
